FAERS Safety Report 10164307 (Version 1)
Quarter: 2014Q2

REPORT INFORMATION
  Report Type: Spontaneous
  Country: US (occurrence: US)
  Receive Date: 20140510
  Receipt Date: 20140510
  Transmission Date: 20141212
  Serious: No
  Sender: FDA-Public Use
  Company Number: US-BRISTOL-MYERS SQUIBB COMPANY-20035671

PATIENT
  Age: 73 Year
  Sex: Female
  Weight: 67.12 kg

DRUGS (5)
  1. BYDUREON [Suspect]
     Indication: TYPE 2 DIABETES MELLITUS
     Route: 058
     Dates: start: 20131028, end: 20131220
  2. METFORMIN HCL [Suspect]
  3. AMARYL [Suspect]
  4. STARLIX [Concomitant]
  5. LORAZEPAM [Concomitant]

REACTIONS (9)
  - Nausea [Unknown]
  - Headache [Unknown]
  - Eructation [Unknown]
  - Diarrhoea [Unknown]
  - Decreased appetite [Unknown]
  - Hypoglycaemia [Unknown]
  - Vomiting [Unknown]
  - Dizziness [Unknown]
  - Anxiety [Unknown]
